FAERS Safety Report 10210065 (Version 1)
Quarter: 2014Q2

REPORT INFORMATION
  Report Type: Spontaneous
  Country: US (occurrence: US)
  Receive Date: 20140602
  Receipt Date: 20140602
  Transmission Date: 20141212
  Serious: No
  Sender: FDA-Public Use
  Company Number: US-MYLANLABS-2014S1004083

PATIENT
  Sex: Female
  Weight: 72.58 kg

DRUGS (3)
  1. HYDROXYCHLOROQUINE SULFATE TABLETS, USP [Suspect]
     Indication: SJOGREN^S SYNDROME
     Dates: start: 20140207, end: 20140213
  2. HYDROXYCHLOROQUINE SULFATE TABLETS, USP [Suspect]
     Indication: OFF LABEL USE
     Dates: start: 20140207, end: 20140213
  3. METHYLPREDNISOLONE [Concomitant]

REACTIONS (3)
  - Abdominal discomfort [Recovered/Resolved]
  - Eructation [Recovered/Resolved]
  - Fibromyalgia [Recovered/Resolved]
